FAERS Safety Report 6391848-5 (Version None)
Quarter: 2009Q4

REPORT INFORMATION
  Report Type: 
  Country: None (occurrence: None)
  Receive Date: 20091007
  Receipt Date: 20090928
  Transmission Date: 20100525
  Serious: Yes (Hospitalization, Other)
  Sender: FDA-Public Use
  Company Number: US-AMGEN-QUU366602

PATIENT
  Sex: Male

DRUGS (1)
  1. ENBREL [Suspect]
     Indication: PSORIATIC ARTHROPATHY
     Route: 058
     Dates: start: 20040601

REACTIONS (5)
  - BACK INJURY [None]
  - DEPRESSION [None]
  - FIBROSIS [None]
  - NERVE COMPRESSION [None]
  - ROAD TRAFFIC ACCIDENT [None]
